FAERS Safety Report 10173963 (Version 2)
Quarter: 2014Q2

REPORT INFORMATION
  Report Type: Spontaneous
  Country: JP (occurrence: JP)
  Receive Date: 20140515
  Receipt Date: 20140617
  Transmission Date: 20141212
  Serious: Yes (Life-Threatening, Hospitalization)
  Sender: FDA-Public Use
  Company Number: JP-BAYER-2014-068386

PATIENT
  Age: 54 Year
  Sex: Male
  Weight: 51 kg

DRUGS (4)
  1. STIVARGA [Suspect]
     Indication: COLON CANCER
     Dosage: 160 MG, QD
     Route: 048
     Dates: start: 20140409, end: 20140415
  2. STIVARGA [Suspect]
     Indication: COLON CANCER
     Dosage: 120 MG, QD
     Route: 048
     Dates: start: 20140416, end: 20140430
  3. OXYCONTIN [Concomitant]
     Indication: COLON CANCER
     Dosage: DAILY DOSE 10 MG
     Route: 048
     Dates: start: 20140402
  4. MAGLAX [Concomitant]
     Dosage: DAILY DOSE 990 MG
     Route: 048
     Dates: start: 20140423

REACTIONS (2)
  - Hepatic failure [Recovered/Resolved]
  - Renal failure [Recovered/Resolved]
